FAERS Safety Report 5740471-1 (Version None)
Quarter: 2008Q2

REPORT INFORMATION
  Report Type: 
  Country: None (occurrence: None)
  Receive Date: 20080513
  Receipt Date: 20080428
  Transmission Date: 20081010
  Serious: Yes (Death, Other)
  Sender: FDA-Public Use
  Company Number: 2008VX001015

PATIENT
  Age: 68 Year
  Sex: Female

DRUGS (7)
  1. FLUCYTOSINE (FLUCYTOSINE) [Suspect]
     Indication: CRYPTOCOCCOSIS
  2. AMPHOTERICIN B [Suspect]
  3. LIPOSOMAL AMPHOTERICIN (NO PREF. NAME) [Suspect]
  4. FLUCONAZOLE [Suspect]
     Dosage: 400 MG; QD;  60 MG; QD;
  5. INDAPAMIDE [Concomitant]
  6. METOPROLOL TARTRATE [Concomitant]
  7. ASPIRIN [Concomitant]

REACTIONS (14)
  - ATRIAL FIBRILLATION [None]
  - BLOOD CREATININE INCREASED [None]
  - CARDIAC ARREST [None]
  - CARDIO-RESPIRATORY ARREST [None]
  - ELECTROCARDIOGRAM QT PROLONGED [None]
  - ELECTROMECHANICAL DISSOCIATION [None]
  - GRAND MAL CONVULSION [None]
  - HYPOKALAEMIA [None]
  - HYPOMAGNESAEMIA [None]
  - HYPOTENSION [None]
  - NERVOUS SYSTEM DISORDER [None]
  - ORAL INTAKE REDUCED [None]
  - TORSADE DE POINTES [None]
  - VENTRICULAR FIBRILLATION [None]
